FAERS Safety Report 4531589-X (Version None)
Quarter: 2004Q4

REPORT INFORMATION
  Report Type: 
  Country: None (occurrence: None)
  Receive Date: 20041220
  Receipt Date: 20041123
  Transmission Date: 20050328
  Serious: Yes (Other)
  Sender: FDA-Public Use
  Company Number: PHNU2004DE03990

PATIENT
  Age: 77 Year
  Sex: Female

DRUGS (1)
  1. LOCOL [Suspect]
     Indication: HYPERCHOLESTEROLAEMIA
     Dosage: 40 MG, QD
     Route: 048
     Dates: start: 20041030, end: 20041105

REACTIONS (8)
  - ALANINE AMINOTRANSFERASE INCREASED [None]
  - ASPARTATE AMINOTRANSFERASE INCREASED [None]
  - BLOOD ALKALINE PHOSPHATASE INCREASED [None]
  - BLOOD BILIRUBIN INCREASED [None]
  - GAMMA-GLUTAMYLTRANSFERASE INCREASED [None]
  - HEPATOCELLULAR DAMAGE [None]
  - JAUNDICE [None]
  - LIVER FUNCTION TEST ABNORMAL [None]
